FAERS Safety Report 8228925-X (Version None)
Quarter: 2012Q1

REPORT INFORMATION
  Report Type: 
  Country: None (occurrence: None)
  Receive Date: 20120322
  Receipt Date: 20120313
  Transmission Date: 20120608
  Serious: Yes (Other)
  Sender: FDA-Public Use
  Company Number: CA-ASTRAZENECA-2012SE17374

PATIENT
  Age: 3 Year
  Sex: Male

DRUGS (4)
  1. VANCOMYCIN [Concomitant]
     Indication: SHUNT INFECTION
     Route: 042
  2. VANCOMYCIN [Concomitant]
     Indication: BRAIN ABSCESS
     Route: 042
  3. MEROPENEM [Suspect]
     Indication: SHUNT INFECTION
     Route: 042
  4. MEROPENEM [Suspect]
     Indication: BRAIN ABSCESS
     Route: 042

REACTIONS (1)
  - SERUM SICKNESS-LIKE REACTION [None]
